FAERS Safety Report 14350540 (Version 1)
Quarter: 2018Q1

REPORT INFORMATION
  Report Type: Spontaneous
  Country: US (occurrence: US)
  Receive Date: 20180102
  Receipt Date: 20180102
  Transmission Date: 20180509
  Serious: No
  Sender: FDA-Public Use
  Company Number: None

PATIENT
  Sex: Female

DRUGS (3)
  1. METHOTREXATE UNKNOWN GENERIC [Suspect]
     Active Substance: METHOTREXATE
  2. HUMIRA [Suspect]
     Active Substance: ADALIMUMAB
     Indication: ANKYLOSING SPONDYLITIS
     Route: 058
     Dates: start: 201607
  3. COAL TAR. [Concomitant]
     Active Substance: COAL TAR

REACTIONS (3)
  - Skin ulcer [None]
  - Drug effect incomplete [None]
  - Psoriasis [None]
